FAERS Safety Report 11702024 (Version 1)
Quarter: 2015Q4

REPORT INFORMATION
  Report Type: Spontaneous
  Country: FR (occurrence: FR)
  Receive Date: 20151105
  Receipt Date: 20151105
  Transmission Date: 20160304
  Serious: Yes (Hospitalization)
  Sender: FDA-Public Use
  Company Number: FR-ASTRAZENECA-2015SF05001

PATIENT
  Age: 25822 Day
  Sex: Female

DRUGS (6)
  1. XEROQUEL [Suspect]
     Active Substance: QUETIAPINE FUMARATE
     Indication: BIPOLAR DISORDER
     Route: 048
  2. HALDOL [Suspect]
     Active Substance: HALOPERIDOL
     Route: 048
     Dates: start: 201510, end: 20151019
  3. XANAX [Suspect]
     Active Substance: ALPRAZOLAM
     Indication: ANXIETY
     Dosage: LONG RUN TREATMENT
     Route: 048
  4. DEPAKOTE [Suspect]
     Active Substance: DIVALPROEX SODIUM
     Indication: BIPOLAR DISORDER
     Dosage: LONG RUN TREATMENT
     Route: 048
  5. FLUVOXAMINE [Suspect]
     Active Substance: FLUVOXAMINE
     Indication: DEPRESSION
     Route: 048
     Dates: start: 201509, end: 20151012
  6. LYSANXIA [Suspect]
     Active Substance: PRAZEPAM
     Route: 048

REACTIONS (7)
  - Thrombocytopenia [Not Recovered/Not Resolved]
  - Anal sphincter atony [Not Recovered/Not Resolved]
  - Delirium [Not Recovered/Not Resolved]
  - Hypoglycaemia [Not Recovered/Not Resolved]
  - Gait disturbance [Unknown]
  - Dysuria [Unknown]
  - Confusional state [Not Recovered/Not Resolved]

NARRATIVE: CASE EVENT DATE: 20151012
